FAERS Safety Report 6068051-1 (Version None)
Quarter: 2009Q1

REPORT INFORMATION
  Report Type: 
  Country: None (occurrence: None)
  Receive Date: 20090206
  Receipt Date: 20090128
  Transmission Date: 20090719
  Serious: Yes (Other)
  Sender: FDA-Public Use
  Company Number: BR-BAYER-200911530LA

PATIENT
  Age: 0 Hour
  Sex: Male
  Weight: 6.25 kg

DRUGS (1)
  1. MIRENA [Suspect]
     Indication: CONTRACEPTION
     Route: 064
     Dates: start: 20071201

REACTIONS (2)
  - FACIAL PALSY [None]
  - SMALL FOR DATES BABY [None]
